FAERS Safety Report 14107754 (Version 1)
Quarter: 2017Q4

REPORT INFORMATION
  Report Type: Spontaneous
  Country: US (occurrence: US)
  Receive Date: 20171019
  Receipt Date: 20171019
  Transmission Date: 20180321
  Serious: Yes (Other)
  Sender: FDA-Public Use
  Company Number: US-PFIZER INC-2017448499

PATIENT
  Age: 60 Year
  Sex: Female
  Weight: 67.57 kg

DRUGS (12)
  1. FOLIC ACID. [Concomitant]
     Active Substance: FOLIC ACID
     Dosage: 1 MG, DAILY
     Route: 048
  2. ACETAMINOPHEN AND CODEINE [Concomitant]
     Active Substance: ACETAMINOPHEN\CODEINE PHOSPHATE
     Indication: PAIN
     Dosage: 1 DF, AS NEEDED [CODEINE PHOSPHATE: 30 MG, PARACETAMOL: 300 MG, TWICE A DAY]
     Route: 048
  3. XELJANZ [Suspect]
     Active Substance: TOFACITINIB CITRATE
     Indication: RHEUMATOID ARTHRITIS
     Dosage: 5 MG, TWICE A DAY
     Route: 048
     Dates: start: 20170605, end: 20170925
  4. CALCIUM [Concomitant]
     Active Substance: CALCIUM
     Dosage: 600 MG, DAILY
  5. METHOTREXATE. [Concomitant]
     Active Substance: METHOTREXATE
     Dosage: 12.5 MG, WEEKLY (TAKE 5 TABS)
     Route: 048
  6. IBUPROFEN. [Concomitant]
     Active Substance: IBUPROFEN
     Dosage: 600 MG, AS NEEDED [THREE TIMES A DAY]
     Route: 048
  7. NEXIUM [Concomitant]
     Active Substance: ESOMEPRAZOLE MAGNESIUM
     Dosage: 20 MG, 2X/DAY
     Route: 048
  8. VITAMIN D [Concomitant]
     Active Substance: CHOLECALCIFEROL
     Dosage: 1000 IU, DAILY
  9. PREDNISONE. [Concomitant]
     Active Substance: PREDNISONE
     Indication: PAIN
     Dosage: UNK, AS NEEDED [5 MG TAKE 1-2 TABLETS]
  10. DICLOFENAC SODIUM. [Concomitant]
     Active Substance: DICLOFENAC SODIUM
     Dosage: UNK, 4X/DAY (1% APPLY 2-4 GRAMS TO AFFECTED AREA)
  11. XELJANZ [Suspect]
     Active Substance: TOFACITINIB CITRATE
     Dosage: 5 MG, DAILY
  12. PRAVACHOL [Concomitant]
     Active Substance: PRAVASTATIN SODIUM
     Dosage: 60 MG, DAILY
     Route: 048

REACTIONS (7)
  - Urinary tract infection [Recovered/Resolved]
  - Neck pain [Unknown]
  - Pollakiuria [Recovered/Resolved]
  - Fatigue [Unknown]
  - Headache [Unknown]
  - Night sweats [Unknown]
  - Dry eye [Unknown]

NARRATIVE: CASE EVENT DATE: 20170627
